FAERS Safety Report 16634689 (Version 1)
Quarter: 2019Q3

REPORT INFORMATION
  Report Type: Spontaneous
  Country: JP (occurrence: JP)
  Receive Date: 20190726
  Receipt Date: 20190726
  Transmission Date: 20191004
  Serious: Yes (Other)
  Sender: FDA-Public Use
  Company Number: JP-LUPIN PHARMACEUTICALS INC.-2019-04583

PATIENT
  Age: 78 Year
  Sex: Male

DRUGS (1)
  1. LANTHANUM CARBONATE. [Suspect]
     Active Substance: LANTHANUM CARBONATE
     Indication: HELICOBACTER INFECTION
     Dosage: UNK, 10 YEARS
     Route: 065

REACTIONS (2)
  - Bezoar [Unknown]
  - Adenocarcinoma gastric [Unknown]
